FAERS Safety Report 17234960 (Version 1)
Quarter: 2020Q1

REPORT INFORMATION
  Report Type: Spontaneous
  Country: US (occurrence: US)
  Receive Date: 20200106
  Receipt Date: 20200106
  Transmission Date: 20200409
  Serious: No
  Sender: FDA-Public Use
  Company Number: US-UCBSA-2015004652

PATIENT

DRUGS (1)
  1. CIMZIA [Suspect]
     Active Substance: CERTOLIZUMAB PEGOL
     Indication: PRODUCT USED FOR UNKNOWN INDICATION
     Dosage: UNK

REACTIONS (5)
  - Fatigue [Unknown]
  - Asthenia [Unknown]
  - Pain in extremity [Unknown]
  - Musculoskeletal stiffness [Unknown]
  - Feeling abnormal [Unknown]
